FAERS Safety Report 4300651-9 (Version None)
Quarter: 2004Q1

REPORT INFORMATION
  Report Type: 
  Country: None (occurrence: None)
  Receive Date: 20040219
  Receipt Date: 20040219
  Transmission Date: 20041129
  Serious: Yes (Hospitalization)
  Sender: FDA-Public Use
  Company Number: None

PATIENT
  Age: 78 Year
  Sex: Male

DRUGS (10)
  1. ALDACTONE [Suspect]
  2. DIGOXIN [Concomitant]
  3. LASIX [Concomitant]
  4. OMEPRAZOLE [Concomitant]
  5. FERROUS SO4 [Concomitant]
  6. COUMADIN [Concomitant]
  7. METOPROLOL [Concomitant]
  8. LEVOFLOXACIN [Concomitant]
  9. GLIPIZIDE [Concomitant]
  10. LEVOTHYROXINE SODIUM [Concomitant]

REACTIONS (1)
  - HYPERKALAEMIA [None]
